FAERS Safety Report 19735776 (Version 5)
Quarter: 2023Q2

REPORT INFORMATION
  Report Type: Spontaneous
  Country: US (occurrence: US)
  Receive Date: 20210823
  Receipt Date: 20230411
  Transmission Date: 20230722
  Serious: Yes (Other)
  Sender: FDA-Public Use
  Company Number: US-PFIZER INC-2020293459

PATIENT
  Age: 47 Year
  Sex: Male

DRUGS (7)
  1. INLYTA [Suspect]
     Active Substance: AXITINIB
     Dosage: UNK
     Dates: start: 20200710
  2. INLYTA [Suspect]
     Active Substance: AXITINIB
     Dosage: 1 MG
     Dates: start: 20200711
  3. INLYTA [Suspect]
     Active Substance: AXITINIB
     Dosage: UNK
     Dates: start: 20210610, end: 20210617
  4. INLYTA [Suspect]
     Active Substance: AXITINIB
     Dosage: 6 MG
     Dates: start: 202103
  5. INLYTA [Suspect]
     Active Substance: AXITINIB
     Dosage: 1 MG
     Dates: end: 20220224
  6. INLYTA [Suspect]
     Active Substance: AXITINIB
     Dosage: 2 MG, 2X/DAY
     Dates: end: 20230323
  7. KEYTRUDA [Concomitant]
     Active Substance: PEMBROLIZUMAB
     Dosage: UNK
     Dates: start: 202106

REACTIONS (9)
  - Central venous catheterisation [Unknown]
  - Dental operation [Unknown]
  - Blister [Unknown]
  - Gait disturbance [Unknown]
  - Sleep apnoea syndrome [Unknown]
  - Pain in extremity [Unknown]
  - Balance disorder [Unknown]
  - Bone disorder [Unknown]
  - Fatigue [Unknown]

NARRATIVE: CASE EVENT DATE: 20210601
